FAERS Safety Report 16296014 (Version 1)
Quarter: 2019Q2

REPORT INFORMATION
  Report Type: Report from Study
  Country: US (occurrence: US)
  Receive Date: 20190510
  Receipt Date: 20190510
  Transmission Date: 20190711
  Serious: Yes (Hospitalization)
  Sender: FDA-Public Use
  Company Number: US-ROCHE-2310641

PATIENT
  Age: 80 Year
  Sex: Female
  Weight: 51.2 kg

DRUGS (3)
  1. PEGYLATED LIPOSOMAL DOXORUBICIN [Suspect]
     Active Substance: DOXORUBICIN
     Indication: OVARIAN CANCER
     Route: 042
     Dates: start: 20180827
  2. BEVACIZUMAB. [Suspect]
     Active Substance: BEVACIZUMAB
     Indication: OVARIAN CANCER
     Route: 042
     Dates: start: 20180827
  3. ATEZOLIZUMAB. [Suspect]
     Active Substance: ATEZOLIZUMAB
     Indication: OVARIAN CANCER
     Dosage: MOST RECENT DOSE PRIOR TO EVENT ONSET ON 08/OCT/2018?TOTAL DOSE ADMINISTERED THIS COURSE (1600 MG)
     Route: 042
     Dates: start: 20180924

REACTIONS (2)
  - Dysphagia [Recovered/Resolved with Sequelae]
  - Back pain [Recovering/Resolving]

NARRATIVE: CASE EVENT DATE: 20180921
